FAERS Safety Report 21908919 (Version 1)
Quarter: 2023Q1

REPORT INFORMATION
  Report Type: Spontaneous
  Country: US (occurrence: US)
  Receive Date: 20230125
  Receipt Date: 20230125
  Transmission Date: 20230418
  Serious: Yes (Other)
  Sender: FDA-Public Use
  Company Number: US-PFIZER INC-PV202300015389

PATIENT
  Age: 64 Year
  Sex: Female

DRUGS (1)
  1. XELJANZ XR [Suspect]
     Active Substance: TOFACITINIB CITRATE
     Dosage: 11 MG, 1X/DAY
     Route: 048

REACTIONS (7)
  - Psoriatic arthropathy [Unknown]
  - Psoriasis [Unknown]
  - Weight decreased [Unknown]
  - Swelling [Unknown]
  - Fibromyalgia [Unknown]
  - Arthritis [Unknown]
  - Osteoarthritis [Unknown]
